FAERS Safety Report 8218698-9 (Version None)
Quarter: 2012Q1

REPORT INFORMATION
  Report Type: 
  Country: None (occurrence: None)
  Receive Date: 20120319
  Receipt Date: 20120312
  Transmission Date: 20120608
  Serious: Yes (Other)
  Sender: FDA-Public Use
  Company Number: PHFR2012GB001717

PATIENT
  Sex: Male

DRUGS (4)
  1. TEGRETOL [Suspect]
     Indication: CONVULSION
     Dosage: 100 MG, BID (AT MORNING AND NIGHT)
     Route: 048
  2. CALCIUM CARBONATE [Suspect]
     Route: 048
  3. VITAMIN D [Suspect]
  4. STATIN [Concomitant]

REACTIONS (3)
  - CARDIAC DISORDER [None]
  - PAIN IN EXTREMITY [None]
  - DRUG INTERACTION [None]
